FAERS Safety Report 5822798-8 (Version None)
Quarter: 2008Q3

REPORT INFORMATION
  Report Type: 
  Country: None (occurrence: None)
  Receive Date: 20080725
  Receipt Date: 20080711
  Transmission Date: 20090109
  Serious: Yes (Other)
  Sender: FDA-Public Use
  Company Number: US-BRISTOL-MYERS SQUIBB COMPANY-14258453

PATIENT
  Age: 58 Year
  Sex: Female
  Weight: 42 kg

DRUGS (3)
  1. ERBITUX [Suspect]
     Indication: HEAD AND NECK CANCER
     Dosage: START DATE OF FIRST COURSE 10MAR08. START DATE OF COURSE ASSOCIATES WITH EXPEDITED REPORT 24JUN08
     Dates: start: 20080415, end: 20080415
  2. CISPLATIN [Suspect]
     Indication: HEAD AND NECK CANCER
     Dosage: START DATE OF FIRST COURSE 10MAR08. START DATE OF COURSE ASSOCIATES WITH EXPEDITED REPORT 24JUN08
     Dates: start: 20080407, end: 20080407
  3. RADIATION THERAPY [Suspect]
     Indication: HEAD AND NECK CANCER
     Dosage: 1 DOSAGEFORM= 70GY. NUMBER OF FRACTIONS 35. NUMBER OF ELASPSED DAYS 40.
     Dates: start: 20080425, end: 20080425

REACTIONS (2)
  - HYPOALDOSTERONISM [None]
  - HYPONATRAEMIA [None]
